FAERS Safety Report 10101864 (Version 1)
Quarter: 2014Q2

REPORT INFORMATION
  Report Type: Spontaneous
  Country: CH (occurrence: None)
  Receive Date: 20140422
  Receipt Date: 20140422
  Transmission Date: 20141212
  Serious: Yes (Hospitalization)
  Sender: FDA-Public Use
  Company Number: 20140219

PATIENT
  Age: 36 Year
  Sex: Female

DRUGS (9)
  1. FERINJECT (FERRIC CARBOXYMALTOSE - VIFOR) [Suspect]
     Indication: IRON DEFICIENCY ANAEMIA
     Dates: start: 20140129, end: 20140129
  2. CALCIDOSE (CALCIUM CARBONATE, CALCIUM) [Concomitant]
  3. CORTANCYL (PREDNISONE) [Concomitant]
  4. DIFFU K (POTASSIUM CHLORIDE) (POTASSIUM CHLORIDE) [Concomitant]
  5. FOSAVANCE (COLECALCIFEROL, ALENDRONATE SODIUM) [Concomitant]
  6. INEXIUM (ESOMEPRAZOLE MAGNESIUM) (ESOMEPRAZOLE MAGNESIUM) [Concomitant]
  7. KETUM (KETOPROFEN) [Concomitant]
  8. NIVAQUINE (CHLOROQUINE SULFATE) [Concomitant]
  9. PLAQUENIL (HYDROXYCHLOROQUINE) [Concomitant]

REACTIONS (3)
  - Headache [None]
  - Vomiting [None]
  - Hyperthermia [None]
